FAERS Safety Report 4607407-8 (Version None)
Quarter: 2005Q1

REPORT INFORMATION
  Report Type: 
  Country: None (occurrence: None)
  Receive Date: 20050309
  Receipt Date: 20050221
  Transmission Date: 20050727
  Serious: Yes (Hospitalization)
  Sender: FDA-Public Use
  Company Number: 10370

PATIENT
  Age: 70 Year
  Sex: Female

DRUGS (6)
  1. CARBOPLATIN [Suspect]
     Indication: OVARIAN CANCER
     Dosage: 760 MB ONCE IV
     Route: 042
  2. PARACETAMOL [Concomitant]
  3. RANITIDINE [Concomitant]
  4. TINZAPARIN [Concomitant]
  5. DEXAMETHASONE [Concomitant]
  6. DOMPERIDONE [Concomitant]

REACTIONS (5)
  - BODY TEMPERATURE INCREASED [None]
  - EPISTAXIS [None]
  - HYPOMAGNESAEMIA [None]
  - NEUTROPENIC SEPSIS [None]
  - THROMBOCYTOPENIA [None]
